FAERS Safety Report 9165537 (Version 2)
Quarter: 2013Q1

REPORT INFORMATION
  Report Type: Spontaneous
  Country: FR (occurrence: FR)
  Receive Date: 20130315
  Receipt Date: 20130318
  Transmission Date: 20140127
  Serious: Yes (Other)
  Sender: FDA-Public Use
  Company Number: FR-JNJFOC-20130304668

PATIENT
  Sex: 0

DRUGS (8)
  1. DOXORUBICIN HYDROCHLORIDE [Suspect]
     Indication: B-CELL LYMPHOMA
     Route: 042
  2. LENALIDOMIDE [Suspect]
     Indication: B-CELL LYMPHOMA
     Dosage: FROM DAY 1 TO DAY 14
     Route: 065
  3. RITUXIMAB [Suspect]
     Indication: B-CELL LYMPHOMA
     Route: 065
  4. CYCLOPHOSPHAMIDE [Suspect]
     Indication: B-CELL LYMPHOMA
     Route: 065
  5. VINCRISTINE [Suspect]
     Indication: B-CELL LYMPHOMA
     Dosage: UP TO A MAXIMUM DOSE OF 2 MG IN 50-100 ML NORMAL SALINE IN 10-20 MINUTE ON DAY1
     Route: 042
  6. PREDNISONE [Suspect]
     Indication: B-CELL LYMPHOMA
     Dosage: ON DAYS 1 THROUGH 5
     Route: 065
  7. PEGFILGRASTIM [Suspect]
     Indication: B-CELL LYMPHOMA
     Dosage: ON DAY 4 OF EACH CYCLE
     Route: 065
  8. ASPIRIN [Concomitant]
     Indication: PROPHYLAXIS
     Route: 065

REACTIONS (1)
  - Chronic respiratory failure [Unknown]
